FAERS Safety Report 15880354 (Version 1)
Quarter: 2019Q1

REPORT INFORMATION
  Report Type: Spontaneous
  Country: US (occurrence: US)
  Receive Date: 20190128
  Receipt Date: 20190128
  Transmission Date: 20190417
  Serious: Yes (Hospitalization, Other)
  Sender: FDA-Public Use
  Company Number: None

PATIENT
  Age: 61 Year
  Sex: Male
  Weight: 180.9 kg

DRUGS (1)
  1. LISINOPRIL 5 MG TABLET RX 502601250052 [Suspect]
     Active Substance: LISINOPRIL
     Indication: PROPHYLAXIS
     Dosage: ?          QUANTITY:1 TABLET(S);?
     Route: 048
     Dates: start: 20181027, end: 20190122

REACTIONS (4)
  - Swelling [None]
  - Swelling face [None]
  - Swollen tongue [None]
  - Lip swelling [None]

NARRATIVE: CASE EVENT DATE: 20190123
